FAERS Safety Report 8575396 (Version 3)
Quarter: 2012Q4

REPORT INFORMATION
  Report Type: 
  Country: US (occurrence: US)
  Receive Date: 20120523
  Receipt Date: 20120910
  Transmission Date: 20130627
  Serious: Yes (Other)
  Sender: FDA-Public Use
  Company Number: US-JNJFOC-20120514017

PATIENT
  Sex: Female

DRUGS (1)
  1. MONONESSA [Suspect]
     Indication: PRODUCT USED FOR UNKNOWN INDICATION
     Route: 048
     Dates: start: 201109

REACTIONS (3)
  - Abdominal pain [Unknown]
  - Nausea [Unknown]
  - Vomiting [Unknown]
